FAERS Safety Report 4925714-6 (Version None)
Quarter: 2006Q1

REPORT INFORMATION
  Report Type: 
  Country: None (occurrence: None)
  Receive Date: 20060228
  Receipt Date: 20050128
  Transmission Date: 20060701
  Serious: Yes (Disabling)
  Sender: FDA-Public Use
  Company Number: US-GLAXOSMITHKLINE-A0542838A

PATIENT
  Age: 30 Year
  Sex: Female
  Weight: 72.7 kg

DRUGS (3)
  1. LAMICTAL [Suspect]
     Indication: BIPOLAR DISORDER
     Route: 048
     Dates: start: 20040927
  2. WELLBUTRIN XL [Suspect]
  3. ADDERALL XR 10 [Concomitant]

REACTIONS (1)
  - APHASIA [None]
